FAERS Safety Report 22228255 (Version 1)
Quarter: 2023Q2

REPORT INFORMATION
  Report Type: Spontaneous
  Country: US (occurrence: None)
  Receive Date: 20230418
  Receipt Date: 20230418
  Transmission Date: 20230721
  Serious: Yes (Other)
  Sender: FDA-Public Use
  Company Number: None

PATIENT
  Age: 33 Year
  Sex: Female
  Weight: 57.15 kg

DRUGS (3)
  1. DYSPORT [Suspect]
     Active Substance: ABOBOTULINUMTOXINA
  2. VITAMINS [Concomitant]
     Active Substance: VITAMINS
  3. MAGNESIUM [Concomitant]
     Active Substance: MAGNESIUM

REACTIONS (8)
  - Headache [None]
  - Palpitations [None]
  - Nausea [None]
  - Tinnitus [None]
  - Anxiety [None]
  - Dizziness [None]
  - Impaired quality of life [None]
  - Muscle contractions involuntary [None]

NARRATIVE: CASE EVENT DATE: 20230116
